FAERS Safety Report 14229233 (Version 1)
Quarter: 2017Q4

REPORT INFORMATION
  Report Type: Spontaneous
  Country: US (occurrence: US)
  Receive Date: 20171128
  Receipt Date: 20171128
  Transmission Date: 20180321
  Serious: No
  Sender: FDA-Public Use
  Company Number: US-PFIZER INC-2017506984

PATIENT
  Age: 76 Year
  Sex: Female

DRUGS (13)
  1. LYRICA [Suspect]
     Active Substance: PREGABALIN
     Dosage: 100 MG, 2X/DAY (60 CAPSULE FOR 30 DAYS)
     Route: 048
     Dates: start: 20170925
  2. LYRICA [Suspect]
     Active Substance: PREGABALIN
     Dosage: 100 MG, 2X/DAY
     Route: 048
     Dates: start: 20171110
  3. LACTULOSE. [Concomitant]
     Active Substance: LACTULOSE
     Dosage: 15 ML, 2X/DAY
     Route: 048
  4. MOVANTIK [Concomitant]
     Active Substance: NALOXEGOL OXALATE
     Dosage: 12.5 MG, DAILY
     Route: 048
  5. MAXALT-MLT [Concomitant]
     Active Substance: RIZATRIPTAN BENZOATE
     Dosage: 10 MG, AS NEEDED (ONES A DAY FOR 90 DAYS)
     Route: 048
     Dates: start: 20171110
  6. LYRICA [Suspect]
     Active Substance: PREGABALIN
     Dosage: 75 MG, 2X/DAY
     Route: 048
  7. AMITIZA [Concomitant]
     Active Substance: LUBIPROSTONE
     Dosage: 24 UG, 2X/DAY (DAILY FOR 90 DAYS)
     Route: 048
     Dates: start: 20171110
  8. BACLOFEN. [Concomitant]
     Active Substance: BACLOFEN
     Dosage: 10 MG, 3X/DAY (DAILY FOR 30 DAYS)
     Route: 048
  9. HYDROCODONE/ACETAMINOPHEN [Concomitant]
     Active Substance: ACETAMINOPHEN\HYDROCODONE
     Dosage: 1 DF, AS NEEDED[HYDROCODONE: 5MG]- [ACETAMINOPHEN: 325MG](2 TIMES A DAY AS NEEDED)
     Route: 048
  10. MAXALT [Concomitant]
     Active Substance: RIZATRIPTAN BENZOATE
     Dosage: 10 MG, AS NEEDED (ONCE A DAY FOR 30 DAYS)
     Route: 048
  11. MIRALAX [Concomitant]
     Active Substance: POLYETHYLENE GLYCOL 3350
     Dosage: 17 G, DAILY (FOR 30 DAYS)
     Route: 048
  12. VICODIN [Concomitant]
     Active Substance: ACETAMINOPHEN\HYDROCODONE BITARTRATE
     Dosage: 1 DF, AS NEEDED[HYDROCODONE BITARTRATE: 5MG]- [ACETAMINOPHEN 300MG] (EVERY 8 HOURS AS NEEDED)
     Route: 048
     Dates: start: 20170822
  13. LYRICA [Suspect]
     Active Substance: PREGABALIN
     Dosage: 50 MG, 2X/DAY
     Route: 048

REACTIONS (7)
  - Drug ineffective [Unknown]
  - Back pain [Recovering/Resolving]
  - Neck pain [Recovering/Resolving]
  - Musculoskeletal stiffness [Unknown]
  - Headache [Unknown]
  - Paraesthesia [Unknown]
  - Pain in extremity [Recovering/Resolving]
